FAERS Safety Report 15796833 (Version 2)
Quarter: 2019Q2

REPORT INFORMATION
  Report Type: Report from Study
  Country: JP (occurrence: JP)
  Receive Date: 20190108
  Receipt Date: 20190403
  Transmission Date: 20190711
  Serious: Yes (Other)
  Sender: FDA-Public Use
  Company Number: JP-UCBSA-2018004609

PATIENT
  Age: 21 Year
  Sex: Male
  Weight: 39 kg

DRUGS (9)
  1. LACOSAMIDE. [Suspect]
     Active Substance: LACOSAMIDE
     Indication: OFF LABEL USE
     Dosage: 100 MG, 2X/DAY (BID)
     Route: 048
     Dates: start: 20171027, end: 20180426
  2. LANDSEN [Concomitant]
     Active Substance: CLONAZEPAM
     Indication: TONIC CONVULSION
     Dosage: 1 MG DAILY
     Route: 048
     Dates: end: 20181018
  3. LACOSAMIDE. [Suspect]
     Active Substance: LACOSAMIDE
     Indication: TONIC CONVULSION
     Dosage: 50 MG, 2X/DAY (BID)
     Route: 048
     Dates: start: 20170908, end: 20171026
  4. MAGNESIUM OXIDE. [Concomitant]
     Active Substance: MAGNESIUM OXIDE
     Indication: CONSTIPATION
     Dosage: 1000 MG DAILY
     Route: 048
  5. LACOSAMIDE. [Suspect]
     Active Substance: LACOSAMIDE
     Dosage: 50 MG, ONCE DAILY (QD)
     Route: 048
     Dates: start: 20180525, end: 20180621
  6. LACOSAMIDE. [Suspect]
     Active Substance: LACOSAMIDE
     Dosage: 50 MG, 2X/DAY (BID)
     Route: 048
     Dates: start: 20180427, end: 20180524
  7. HIRNAMIN [Concomitant]
     Active Substance: LEVOMEPROMAZINE
     Indication: INSOMNIA
     Dosage: UNK
     Dates: start: 20180319
  8. GABAPEN [Concomitant]
     Active Substance: GABAPENTIN
     Indication: TONIC CONVULSION
     Dosage: 800 MG DAILY
     Route: 048
  9. E KEPPRA [Suspect]
     Active Substance: LEVETIRACETAM
     Indication: TONIC CONVULSION
     Dosage: 2000 MG DAILY
     Route: 048
     Dates: start: 201308, end: 20180906

REACTIONS (4)
  - Decreased appetite [Recovering/Resolving]
  - Somnolence [Recovering/Resolving]
  - Off label use [Unknown]
  - Weight decreased [Recovering/Resolving]

NARRATIVE: CASE EVENT DATE: 20170908
